FAERS Safety Report 21382429 (Version 2)
Quarter: 2023Q1

REPORT INFORMATION
  Report Type: Spontaneous
  Country: GB (occurrence: None)
  Receive Date: 20220927
  Receipt Date: 20230303
  Transmission Date: 20230418
  Serious: Yes (Hospitalization)
  Sender: FDA-Public Use
  Company Number: GB-ROCHE-2673734

PATIENT
  Sex: Female

DRUGS (7)
  1. TOCILIZUMAB [Suspect]
     Active Substance: TOCILIZUMAB
     Indication: Rheumatoid arthritis
     Route: 058
     Dates: start: 2019
  2. INSULIN NOS [Concomitant]
     Active Substance: INSULIN NOS
  3. NOVORAPID [Concomitant]
     Active Substance: INSULIN ASPART
  4. LEVOTHYROXINE [Concomitant]
     Active Substance: LEVOTHYROXINE
  5. VITAMIN B12 [Concomitant]
     Active Substance: CYANOCOBALAMIN
  6. TOLTERODINE [Concomitant]
     Active Substance: TOLTERODINE
  7. AMLODIPINE [Concomitant]
     Active Substance: AMLODIPINE BESYLATE

REACTIONS (5)
  - Liver disorder [Unknown]
  - Kidney infection [Unknown]
  - Sepsis [Unknown]
  - Herpes zoster [Unknown]
  - Pain in extremity [Unknown]
